FAERS Safety Report 4830552-9 (Version None)
Quarter: 2005Q4

REPORT INFORMATION
  Report Type: 
  Country: None (occurrence: None)
  Receive Date: 20051115
  Receipt Date: 20051031
  Transmission Date: 20060501
  Serious: Yes (Death)
  Sender: FDA-Public Use
  Company Number: DSA_60542_2005

PATIENT
  Age: 52 Year
  Sex: Female

DRUGS (3)
  1. TONOPAN [Suspect]
     Indication: MIGRAINE
     Dosage: 1 DF ONCE PO
     Route: 048
     Dates: start: 20050609, end: 20050609
  2. ACETYLSALICYLIC ACID [Concomitant]
  3. DIAZEPAM [Concomitant]

REACTIONS (2)
  - ANAPHYLACTIC SHOCK [None]
  - RESPIRATORY FAILURE [None]
